FAERS Safety Report 22975671 (Version 2)
Quarter: 2023Q4

REPORT INFORMATION
  Report Type: Spontaneous
  Country: BR (occurrence: BR)
  Receive Date: 20230925
  Receipt Date: 20231222
  Transmission Date: 20240110
  Serious: Yes (Disabling, Other)
  Sender: FDA-Public Use
  Company Number: BR-CHEPLA-2023011794

PATIENT
  Sex: Female
  Weight: 54 kg

DRUGS (3)
  1. CLONAZEPAM [Suspect]
     Active Substance: CLONAZEPAM
     Indication: Epilepsy
     Dosage: STARTED USING THE DRUG WHEN SHE WAS 1 YEAR AND 8 MONTHS OLD
     Route: 048
     Dates: start: 2003, end: 2018
  2. DEPAKENE [Suspect]
     Active Substance: VALPROIC ACID
     Indication: Epilepsy
     Dates: start: 2003, end: 2019
  3. CLOBAZAM [Concomitant]
     Active Substance: CLOBAZAM
     Indication: Epilepsy
     Dates: start: 2017

REACTIONS (6)
  - Epilepsy [Recovering/Resolving]
  - Hypothyroidism [Recovering/Resolving]
  - Physical disability [Recovering/Resolving]
  - Mental impairment [Recovering/Resolving]
  - Condition aggravated [Recovering/Resolving]
  - Drug ineffective [Recovered/Resolved]

NARRATIVE: CASE EVENT DATE: 20150101
